FAERS Safety Report 6032109-3 (Version None)
Quarter: 2009Q1

REPORT INFORMATION
  Report Type: 
  Country: None (occurrence: None)
  Receive Date: 20090107
  Receipt Date: 20081223
  Transmission Date: 20090719
  Serious: Yes (Other)
  Sender: FDA-Public Use
  Company Number: 100#03#2008-06361

PATIENT
  Age: 77 Year
  Sex: Female

DRUGS (7)
  1. PRAMIPEXOLE DIHYDROCHLORIDE [Suspect]
     Indication: RESTLESS LEGS SYNDROME
     Dosage: 88 MCG; ORAL
     Route: 048
     Dates: end: 20081204
  2. MIRTAZAPINE [Suspect]
     Indication: DEPRESSION
     Dosage: 30 MG, ORAL; 45 MG, ORAL
     Route: 048
     Dates: start: 20081020
  3. MIRTAZAPINE [Suspect]
     Indication: DEPRESSION
     Dosage: 30 MG, ORAL; 45 MG, ORAL
     Route: 048
     Dates: start: 20081130
  4. ANASTROZOLE [Concomitant]
  5. ATENOLOL [Concomitant]
  6. CANDESARTAN CILEXETIL [Concomitant]
  7. FELODIPINE [Concomitant]

REACTIONS (2)
  - DRUG INTERACTION [None]
  - FEMALE ORGASMIC DISORDER [None]
